FAERS Safety Report 8618744-4 (Version None)
Quarter: 2012Q3

REPORT INFORMATION
  Report Type: 
  Country: None (occurrence: None)
  Receive Date: 20120815
  Receipt Date: 20120815
  Transmission Date: 20120928
  Serious: Yes (Life-Threatening, Hospitalization, Disabling)
  Sender: FDA-Public Use
  Company Number: None

PATIENT
  Age: 24 Year
  Sex: Female
  Weight: 72.5755 kg

DRUGS (1)
  1. MIRENA [Suspect]
     Indication: CONTRACEPTION
     Dates: start: 20080404, end: 20100802

REACTIONS (10)
  - FALLOPIAN TUBE PERFORATION [None]
  - PREGNANCY [None]
  - DEPRESSION [None]
  - ECTOPIC PREGNANCY WITH INTRAUTERINE DEVICE [None]
  - FEELING GUILTY [None]
  - ANGER [None]
  - AMENORRHOEA [None]
  - MATERNAL EXPOSURE DURING PREGNANCY [None]
  - PLACENTA PRAEVIA [None]
  - MATERNAL EXPOSURE BEFORE PREGNANCY [None]
